FAERS Safety Report 10682570 (Version 1)
Quarter: 2014Q4

REPORT INFORMATION
  Report Type: Spontaneous
  Country: US (occurrence: None)
  Receive Date: 20141229
  Receipt Date: 20141229
  Transmission Date: 20150529
  Serious: Yes (Disabling)
  Sender: FDA-Public Use
  Company Number: None

PATIENT
  Age: 50 Year
  Sex: Male
  Weight: 65.77 kg

DRUGS (1)
  1. SIMVASTATIN. [Suspect]
     Active Substance: SIMVASTATIN
     Indication: BLOOD CHOLESTEROL INCREASED
     Route: 048
     Dates: start: 20120319, end: 20141117

REACTIONS (7)
  - Muscular weakness [None]
  - Pain [None]
  - Middle insomnia [None]
  - Impaired driving ability [None]
  - Hypotonia [None]
  - Hypoaesthesia [None]
  - Neck pain [None]

NARRATIVE: CASE EVENT DATE: 20141006
